FAERS Safety Report 7550242-1 (Version None)
Quarter: 2011Q2

REPORT INFORMATION
  Report Type: 
  Country: None (occurrence: None)
  Receive Date: 20110615
  Receipt Date: 20110603
  Transmission Date: 20111010
  Serious: Yes (Hospitalization)
  Sender: FDA-Public Use
  Company Number: US-PFIZER INC-2011087034

PATIENT
  Age: 61 Year
  Sex: Female
  Weight: 54 kg

DRUGS (5)
  1. BEVACIZUMAB [Suspect]
     Indication: MALIGNANT PERITONEAL NEOPLASM
     Dosage: 10 MG/KG, OVER 30 TO 90 MINUTES DAY 1 AND 15 OF 28 DAY CYCLE
     Route: 042
     Dates: start: 20110128, end: 20110225
  2. LEVOTHYROXINE [Concomitant]
     Dosage: 75 MCG DAILY
     Route: 048
  3. TORISEL [Suspect]
     Indication: MALIGNANT PERITONEAL NEOPLASM
     Dosage: 25 MG ON DAYS 1, 8, 15, AND 22 OF A 28 DAY CYCLE
     Route: 042
     Dates: start: 20110128, end: 20110318
  4. DURAGESIC-100 [Concomitant]
     Dosage: 25 TO 37 MCG EVER HOUR EVERY 3 DAYS
  5. DILAUDID [Concomitant]
     Dosage: 2 MG UP TO 6 TABLETS 4 TIMES DAILY

REACTIONS (2)
  - ANAL FISSURE [None]
  - ABDOMINAL PAIN [None]
